FAERS Safety Report 17839099 (Version 1)
Quarter: 2020Q2

REPORT INFORMATION
  Report Type: Report from Study
  Country: RU (occurrence: RU)
  Receive Date: 20200529
  Receipt Date: 20200529
  Transmission Date: 20200714
  Serious: Yes (Hospitalization, Other)
  Sender: FDA-Public Use
  Company Number: RU-TAIHO ONCOLOGY  INC-IM-2020-00423

PATIENT
  Age: 76 Year
  Sex: Female
  Weight: 50 kg

DRUGS (8)
  1. FERRUM LEK [Concomitant]
     Dosage: 100 MG
     Route: 051
     Dates: start: 20200429
  2. LONSURF [Suspect]
     Active Substance: TIPIRACIL HYDROCHLORIDE\TRIFLURIDINE
     Indication: ADENOCARCINOMA OF COLON
     Dosage: 50 MG (35MG/M2) BID, ON DAYS 1-5 AND 8-12 OF EACH 28-DAY CYCLE
     Route: 048
     Dates: start: 20200218, end: 20200426
  3. KETONAL [Concomitant]
     Indication: PAIN
     Dosage: 50 MG, QD
     Route: 048
     Dates: start: 202001
  4. FERRUM LEK [Concomitant]
     Indication: ANAEMIA
     Dosage: 100 MG, BID
     Route: 048
     Dates: start: 20200205
  5. FOLIC ACID. [Concomitant]
     Active Substance: FOLIC ACID
     Indication: ANAEMIA
     Dosage: 1 DF, TID
     Route: 048
     Dates: start: 20200205
  6. KETONAL [Concomitant]
     Dosage: 100 MG, QD
     Route: 048
     Dates: start: 20200427
  7. BEVACIZUMAB. [Suspect]
     Active Substance: BEVACIZUMAB
     Indication: ADENOCARCINOMA OF COLON
     Dosage: 251.5 MG (5 MG/KG), ON DAY 1 AND 15 OF EACH 28-DAY CYCLE
     Route: 042
     Dates: start: 20200218, end: 20200415
  8. ENALAPRIL MALEATE. [Concomitant]
     Active Substance: ENALAPRIL MALEATE
     Indication: HYPERTENSION
     Dosage: 5 MG, BID
     Route: 048
     Dates: start: 2004

REACTIONS (4)
  - Febrile neutropenia [Recovered/Resolved]
  - Neutropenia [Recovered/Resolved]
  - Leukopenia [Recovered/Resolved]
  - Thrombocytopenia [Recovered/Resolved]

NARRATIVE: CASE EVENT DATE: 20200429
